FAERS Safety Report 22812246 (Version 2)
Quarter: 2024Q1

REPORT INFORMATION
  Report Type: Report from Study
  Country: US (occurrence: US)
  Receive Date: 20230811
  Receipt Date: 20240308
  Transmission Date: 20240410
  Serious: Yes (Other)
  Sender: FDA-Public Use
  Company Number: US-002147023-NVSC2023US171829

PATIENT
  Sex: Male

DRUGS (10)
  1. COSENTYX [Suspect]
     Active Substance: SECUKINUMAB
     Indication: Dermatitis psoriasiform
     Dosage: 300 MG, QW (ONCE PER WEEK FOR 5 WEEKS FOR INITIAL DOSING AND THEN ONCE PER MONTH AFTER THAT)
     Route: 058
  2. COSENTYX [Suspect]
     Active Substance: SECUKINUMAB
     Dosage: 300 MG, QMO (2 PENS (150 MG))
     Route: 058
  3. COSENTYX [Suspect]
     Active Substance: SECUKINUMAB
     Dosage: 150 MG, QMO
     Route: 058
  4. COSENTYX [Suspect]
     Active Substance: SECUKINUMAB
     Dosage: 300 MG, QMO (LAST DOSE)
     Route: 058
     Dates: start: 20231125
  5. ACITRETIN [Suspect]
     Active Substance: ACITRETIN
     Indication: Dermatitis psoriasiform
     Dosage: 50 MG, QD
     Route: 065
  6. TRIAMCINOLONE ACETONIDE [Suspect]
     Active Substance: TRIAMCINOLONE ACETONIDE
     Indication: Dermatitis psoriasiform
     Dosage: 1 DOSAGE FORM, BID
     Route: 061
  7. HYDROXYZINE HYDROCHLORIDE [Suspect]
     Active Substance: HYDROXYZINE HYDROCHLORIDE
     Indication: Dermatitis psoriasiform
     Dosage: 2 DOSAGE FORM, QHS (1-2 TABLET)
     Route: 048
  8. AMLODIPINE [Concomitant]
     Active Substance: AMLODIPINE BESYLATE
     Indication: Product used for unknown indication
     Dosage: 1 DOSAGE FORM, QD
     Route: 048
  9. ATORVASTATIN [Concomitant]
     Active Substance: ATORVASTATIN
     Indication: Product used for unknown indication
     Dosage: 1 DOSAGE FORM, QD
     Route: 048
  10. ENALAPRIL MALEATE [Concomitant]
     Active Substance: ENALAPRIL MALEATE
     Indication: Product used for unknown indication
     Dosage: 1 DOSAGE FORM, QD
     Route: 048

REACTIONS (10)
  - Dermatitis exfoliative generalised [Unknown]
  - Pruritus [Unknown]
  - Rash [Unknown]
  - Skin plaque [Unknown]
  - Skin erosion [Unknown]
  - Seborrhoeic keratosis [Unknown]
  - Papule [Unknown]
  - Pityriasis rubra pilaris [Unknown]
  - Product use in unapproved indication [Unknown]
  - Drug ineffective [Unknown]
